FAERS Safety Report 9339534 (Version 1)
Quarter: 2013Q2

REPORT INFORMATION
  Report Type: Spontaneous
  Country: JP (occurrence: JP)
  Receive Date: 20130610
  Receipt Date: 20130610
  Transmission Date: 20140414
  Serious: Yes (Hospitalization)
  Sender: FDA-Public Use
  Company Number: JP-PFIZER INC-2013172797

PATIENT
  Age: 4 Decade
  Sex: Female

DRUGS (12)
  1. TRIAZOLAM [Suspect]
     Dosage: 0.25 MG/DAY
  2. LORAZEPAM [Suspect]
     Dosage: 3 MG/DAY
  3. FLUNITRAZEPAM [Suspect]
     Dosage: 2 MG/DAY
  4. ETHYL LOFLAZEPATE [Suspect]
     Dosage: 2 MG/DAY
  5. ETIZOLAM [Suspect]
     Dosage: 1.5 MG/DAY
  6. LEVOMEPROMAZINE [Concomitant]
     Dosage: 15 MG/DAY
  7. TRAZODONE [Concomitant]
     Dosage: 25 MG/DAY
  8. PAROXETINE HYDROCHLORIDE [Concomitant]
     Dosage: 10 MG/DAY
  9. LAMOTRIGINE [Concomitant]
     Dosage: 25 MG/DAY
  10. RISPERIDONE [Concomitant]
     Dosage: 1 MG/DAY
  11. ANALGESICS [Concomitant]
  12. ANTI-ASTHMATICS [Concomitant]

REACTIONS (3)
  - Overdose [Unknown]
  - Altered state of consciousness [Unknown]
  - Intentional self-injury [Unknown]
